FAERS Safety Report 15479198 (Version 2)
Quarter: 2018Q4

REPORT INFORMATION
  Report Type: Spontaneous
  Country: US (occurrence: US)
  Receive Date: 20181009
  Receipt Date: 20181116
  Transmission Date: 20190205
  Serious: No
  Sender: FDA-Public Use
  Company Number: US-BAYER-2018-188033

PATIENT
  Sex: Female

DRUGS (1)
  1. MIRENA [Suspect]
     Active Substance: LEVONORGESTREL
     Dosage: 20 MCG/24HR, CONT
     Route: 015
     Dates: start: 2016, end: 2018

REACTIONS (5)
  - Menstruation irregular [Not Recovered/Not Resolved]
  - Device issue [None]
  - Dysmenorrhoea [None]
  - Pelvic pain [None]
  - Device expulsion [Recovered/Resolved]

NARRATIVE: CASE EVENT DATE: 2018
